FAERS Safety Report 9686230 (Version 3)
Quarter: 2013Q4

REPORT INFORMATION
  Report Type: Spontaneous
  Country: IT (occurrence: IT)
  Receive Date: 20131113
  Receipt Date: 20131227
  Transmission Date: 20140711
  Serious: Yes (Hospitalization)
  Sender: FDA-Public Use
  Company Number: PHHY2013IT127274

PATIENT
  Age: 67 Year
  Sex: Male

DRUGS (6)
  1. TAMSULOSIN [Suspect]
     Indication: PROSTATE CANCER
     Dosage: 0.4 MG, QD
     Route: 048
     Dates: start: 20080101, end: 20131005
  2. CITALOPRAM [Suspect]
     Indication: DEPRESSION
     Dosage: 1 DF, UNK
     Route: 048
     Dates: start: 20080101, end: 20131005
  3. RIVOTRIL [Concomitant]
     Dosage: 5 DRP, UNK
     Route: 048
  4. RANIDIL [Concomitant]
     Dosage: 150 MG, UNK
     Route: 048
  5. IDROPLURIVIT [Concomitant]
  6. AMIODARONE [Concomitant]
     Dosage: 200 MG, UNK
     Route: 048

REACTIONS (1)
  - Hyponatraemia [Recovered/Resolved]
